FAERS Safety Report 7503286-X (Version None)
Quarter: 2011Q2

REPORT INFORMATION
  Report Type: 
  Country: None (occurrence: None)
  Receive Date: 20110525
  Receipt Date: 20110513
  Transmission Date: 20111010
  Serious: Yes (Death, Hospitalization, Other)
  Sender: FDA-Public Use
  Company Number: US-ACTELION-A-US2011-47979

PATIENT

DRUGS (2)
  1. TRACLEER [Suspect]
     Indication: PULMONARY ARTERIAL HYPERTENSION
     Dosage: 62.5 MG, BID
     Route: 048
     Dates: start: 20110218, end: 20110409
  2. COUMADIN [Concomitant]

REACTIONS (13)
  - PLEURAL EFFUSION [None]
  - DYSPNOEA [None]
  - BLOOD BILIRUBIN INCREASED [None]
  - HEPATIC CIRRHOSIS [None]
  - NAUSEA [None]
  - ABDOMINAL PAIN [None]
  - ASCITES [None]
  - LETHARGY [None]
  - ANAEMIA [None]
  - CHEST PAIN [None]
  - RENAL FAILURE ACUTE [None]
  - HYPOTENSION [None]
  - ATRIAL FIBRILLATION [None]
